FAERS Safety Report 5709749-1 (Version None)
Quarter: 2008Q2

REPORT INFORMATION
  Report Type: 
  Country: None (occurrence: None)
  Receive Date: 20080418
  Receipt Date: 20080407
  Transmission Date: 20081010
  Serious: Yes (Other)
  Sender: FDA-Public Use
  Company Number: CA-AMGEN-QUU270417

PATIENT
  Sex: Female

DRUGS (2)
  1. ENBREL [Suspect]
     Indication: RHEUMATOID ARTHRITIS
     Route: 058
     Dates: start: 19980606, end: 20070915
  2. METHOTREXATE [Concomitant]
     Dates: start: 20000606, end: 20030101

REACTIONS (21)
  - ABDOMINAL DISCOMFORT [None]
  - BREAST CANCER STAGE I [None]
  - CERVICAL DYSPLASIA [None]
  - CERVICAL SPINAL STENOSIS [None]
  - CHANGE OF BOWEL HABIT [None]
  - DYSPEPSIA [None]
  - FATIGUE [None]
  - FUNGUS SEROLOGY TEST POSITIVE [None]
  - GASTRITIS [None]
  - HAND DEFORMITY [None]
  - HELICOBACTER PYLORI IDENTIFICATION TEST POSITIVE [None]
  - INTERVERTEBRAL DISC COMPRESSION [None]
  - LIMB DISCOMFORT [None]
  - LUNG DISORDER [None]
  - LUNG INFECTION [None]
  - MEMORY IMPAIRMENT [None]
  - NAUSEA [None]
  - PNEUMOTHORAX [None]
  - ROAD TRAFFIC ACCIDENT [None]
  - SEROMA [None]
  - SOFT TISSUE INJURY [None]
